FAERS Safety Report 11941092 (Version 2)
Quarter: 2016Q1

REPORT INFORMATION
  Report Type: Spontaneous
  Country: FR (occurrence: FR)
  Receive Date: 20160122
  Receipt Date: 20160208
  Transmission Date: 20160526
  Serious: No
  Sender: FDA-Public Use
  Company Number: FR-CTI_01857_2016

PATIENT
  Age: 2 Day
  Sex: Male

DRUGS (14)
  1. MORPHINE HYDROCHLORIDE [Suspect]
     Active Substance: MORPHINE HYDROCHLORIDE
     Indication: PRODUCT USED FOR UNKNOWN INDICATION
     Dosage: UNKNOWN; UNKNOWN
     Route: 042
     Dates: start: 20150916, end: 20150918
  2. PARACETAMOL [Suspect]
     Active Substance: ACETAMINOPHEN
     Indication: PRODUCT USED FOR UNKNOWN INDICATION
     Dosage: UNKNOWN; UNKNOWN
     Route: 042
     Dates: start: 20150916
  3. SUFENTA [Suspect]
     Active Substance: SUFENTANIL CITRATE
     Indication: PRODUCT USED FOR UNKNOWN INDICATION
     Dosage: UNKNOWN; UNKNOWN
     Route: 064
     Dates: start: 20150916, end: 20150916
  4. CAFFEINE. [Suspect]
     Active Substance: CAFFEINE
     Indication: APNOEA
     Dosage: UNKNOWN; UNKNOWN
     Route: 042
     Dates: start: 20150917
  5. ZYPREXA [Suspect]
     Active Substance: OLANZAPINE
     Indication: PRODUCT USED FOR UNKNOWN INDICATION
     Dosage: UNKNOWN; UNKNOWN
     Route: 064
  6. XYLOCAIN /00756101/ [Suspect]
     Active Substance: CETYLPYRIDINIUM\LIDOCAINE
     Indication: PRODUCT USED FOR UNKNOWN INDICATION
     Dosage: UNKNOWN; UNKNOWN
     Route: 042
     Dates: start: 20150916, end: 20150916
  7. LASILIX /00032601/ [Suspect]
     Active Substance: FUROSEMIDE
     Indication: PRODUCT USED FOR UNKNOWN INDICATION
     Dosage: 1.32 MG; DAILY
     Route: 042
     Dates: start: 20150917, end: 20150918
  8. CUROSURF [Suspect]
     Active Substance: PORACTANT ALFA
     Indication: NEONATAL RESPIRATORY DISTRESS SYNDROME
     Dosage: 1 DF; DAILY
     Route: 007
     Dates: start: 20150918, end: 20150918
  9. AMIKACIN [Suspect]
     Active Substance: AMIKACIN
     Indication: PRODUCT USED FOR UNKNOWN INDICATION
     Dosage: 23.8 MG, ONCE
     Route: 042
     Dates: start: 20150919, end: 20150919
  10. CELESTENE CHRONODOSE [Suspect]
     Active Substance: BETAMETHASONE
     Indication: PRODUCT USED FOR UNKNOWN INDICATION
     Dosage: UNKNOWN; UNKNOWN
     Route: 064
  11. CUROSURF [Concomitant]
     Active Substance: PORACTANT ALFA
     Indication: NEONATAL RESPIRATORY DISTRESS SYNDROME
     Dosage: 240 MG/3 ML, ONCE
     Route: 007
     Dates: start: 20150916, end: 20150916
  12. ROPIVACAINE [Suspect]
     Active Substance: ROPIVACAINE
     Indication: PRODUCT USED FOR UNKNOWN INDICATION
     Dosage: UNKNOWN; UNKNOWN
     Dates: start: 20150916, end: 20150916
  13. CEFOTAXIME [Suspect]
     Active Substance: CEFOTAXIME SODIUM
     Indication: PRODUCT USED FOR UNKNOWN INDICATION
     Dosage: 128 MG; DAILY
     Route: 042
     Dates: start: 20150916, end: 20150916
  14. CLAMOXYL [Suspect]
     Active Substance: AMOXICILLIN\CLAVULANIC ACID
     Indication: PRODUCT USED FOR UNKNOWN INDICATION
     Dosage: 132 MG; DAILY
     Route: 042
     Dates: start: 20150917, end: 20150919

REACTIONS (1)
  - Neonatal intestinal perforation [Recovered/Resolved with Sequelae]

NARRATIVE: CASE EVENT DATE: 20150919
